FAERS Safety Report 4577358-6 (Version None)
Quarter: 2005Q1

REPORT INFORMATION
  Report Type: 
  Country: None (occurrence: None)
  Receive Date: 20050210
  Receipt Date: 20050113
  Transmission Date: 20050727
  Serious: Yes (Hospitalization)
  Sender: FDA-Public Use
  Company Number: ES-GLAXOSMITHKLINE-B0364902A

PATIENT
  Age: 15 Year
  Sex: Male

DRUGS (6)
  1. AUGMENTIN '125' [Suspect]
     Indication: PROPHYLAXIS
     Dosage: 2G UNKNOWN
     Route: 042
     Dates: start: 20041221, end: 20041221
  2. NOLOTIL [Suspect]
     Indication: ANALGESIC EFFECT
     Route: 042
     Dates: start: 20041221, end: 20041222
  3. MIDAZOLAM HCL [Suspect]
     Indication: ANAESTHESIA
     Dosage: 2MG UNKNOWN
     Route: 042
     Dates: start: 20041221, end: 20041221
  4. THIOPENTAL SODIUM [Suspect]
     Indication: ANAESTHESIA
     Dosage: 300U UNKNOWN
     Route: 042
     Dates: start: 20041221, end: 20041221
  5. FENTANEST [Suspect]
     Indication: ANAESTHESIA
     Dosage: .3U UNKNOWN
     Route: 042
     Dates: start: 20041221, end: 20041221
  6. TRACRIUM [Suspect]
     Indication: ANAESTHESIA
     Dosage: 30U UNKNOWN
     Route: 042
     Dates: start: 20041221, end: 20041221

REACTIONS (13)
  - ABDOMINAL PAIN [None]
  - BLOOD CREATININE INCREASED [None]
  - FEELING ABNORMAL [None]
  - HAEMATOMA INFECTION [None]
  - MALAISE [None]
  - NAUSEA [None]
  - POST PROCEDURAL HAEMATOMA [None]
  - POSTOPERATIVE INFECTION [None]
  - PROCEDURAL COMPLICATION [None]
  - PYREXIA [None]
  - RENAL FAILURE ACUTE [None]
  - RENAL TUBULAR NECROSIS [None]
  - VOMITING [None]
